FAERS Safety Report 10459136 (Version 1)
Quarter: 2014Q3

REPORT INFORMATION
  Report Type: Spontaneous
  Country: US (occurrence: None)
  Receive Date: 20140915
  Receipt Date: 20140915
  Transmission Date: 20150326
  Serious: Yes (Other)
  Sender: FDA-Public Use
  Company Number: 201408152

PATIENT
  Sex: Male

DRUGS (1)
  1. TESTIM [Suspect]
     Active Substance: TESTOSTERONE
     Indication: BLOOD TESTOSTERONE DECREASED
     Route: 062
     Dates: start: 200406, end: 201402

REACTIONS (8)
  - Unevaluable event [None]
  - Pain [None]
  - Myocardial infarction [None]
  - Injury [None]
  - Anhedonia [None]
  - Anxiety [None]
  - Economic problem [None]
  - Family stress [None]

NARRATIVE: CASE EVENT DATE: 201008
